FAERS Safety Report 9737104 (Version 5)
Quarter: 2014Q2

REPORT INFORMATION
  Report Type: Spontaneous
  Country: US (occurrence: US)
  Receive Date: 20131206
  Receipt Date: 20140506
  Transmission Date: 20141212
  Serious: Yes (Hospitalization)
  Sender: FDA-Public Use
  Company Number: US-B.I. PHARMACEUTICALS,INC./RIDGEFIELD-2013-BI-40612BP

PATIENT
  Sex: Male
  Weight: 136.08 kg

DRUGS (10)
  1. PRADAXA [Suspect]
     Indication: ATRIAL FIBRILLATION
     Dosage: 300 MG
     Route: 048
     Dates: start: 20110707, end: 20111207
  2. LIPITOR [Concomitant]
     Route: 065
     Dates: start: 2009
  3. LASIX [Concomitant]
     Route: 065
     Dates: start: 2009
  4. HYDRALAZINE [Concomitant]
     Route: 065
     Dates: start: 2009
  5. LISINOPRIL [Concomitant]
     Route: 065
     Dates: start: 2009
  6. COREG [Concomitant]
     Route: 065
     Dates: start: 2009
  7. LANTUS [Concomitant]
     Route: 065
     Dates: start: 2000
  8. NOVOLOG [Concomitant]
     Route: 065
     Dates: start: 2000
  9. PLAVIX [Concomitant]
     Route: 065
     Dates: start: 2011
  10. ASPIRIN [Concomitant]
     Route: 065

REACTIONS (4)
  - Upper gastrointestinal haemorrhage [Recovered/Resolved]
  - Anaemia [Unknown]
  - Renal failure acute [Unknown]
  - Epistaxis [Unknown]
